FAERS Safety Report 5142330-4 (Version None)
Quarter: 2006Q4

REPORT INFORMATION
  Report Type: 
  Country: None (occurrence: None)
  Receive Date: 20061102
  Receipt Date: 20061025
  Transmission Date: 20070319
  Serious: Yes (Other)
  Sender: FDA-Public Use
  Company Number: LV-ROCHE-468795

PATIENT
  Age: 64 Year
  Sex: Female

DRUGS (2)
  1. XELODA [Suspect]
     Dosage: STRENGTH AND FORMULATION REPORTED AS 500 MG AND 150 MG. DOSAGE REGIMEN REPORTED AS 1800 MG X 2 (INT+
     Route: 048
     Dates: start: 20060120, end: 20060519
  2. XELODA [Suspect]
     Dosage: DOSAGE REGIMEN REPORTED AS 1150 MG X 2 (INTERMITTENT THERAPY OF 14 DAYS TREATMENT, FOLLOWED BY 7 DA+
     Route: 048
     Dates: start: 20060520, end: 20060710

REACTIONS (4)
  - DERMATITIS BULLOUS [None]
  - ERYTHEMA [None]
  - METASTASES TO LIVER [None]
  - PAIN [None]
